FAERS Safety Report 15424601 (Version 1)
Quarter: 2018Q3

REPORT INFORMATION
  Report Type: Spontaneous
  Country: US (occurrence: US)
  Receive Date: 20180925
  Receipt Date: 20180925
  Transmission Date: 20181010
  Serious: No
  Sender: FDA-Public Use
  Company Number: US-009507513-1809USA008919

PATIENT
  Sex: Female

DRUGS (2)
  1. OMEGA?3 MARINE TRIGLYCERIDES [Concomitant]
     Active Substance: FISH OIL
  2. NEXPLANON [Suspect]
     Active Substance: ETONOGESTREL
     Indication: CONTRACEPTION
     Dosage: 1 DF, UNK
     Route: 059
     Dates: end: 20180917

REACTIONS (5)
  - Libido decreased [Unknown]
  - Vulvovaginal mycotic infection [Unknown]
  - Alopecia [Unknown]
  - Mood altered [Unknown]
  - Anxiety [Unknown]
